FAERS Safety Report 8604377-2 (Version None)
Quarter: 2012Q3

REPORT INFORMATION
  Report Type: 
  Country: None (occurrence: None)
  Receive Date: 20120820
  Receipt Date: 20120809
  Transmission Date: 20120928
  Serious: Yes (Hospitalization)
  Sender: FDA-Public Use
  Company Number: US-BAYER-2012-032564

PATIENT
  Age: 23 Year
  Sex: Female
  Weight: 63.492 kg

DRUGS (10)
  1. YASMIN [Suspect]
     Indication: CONTRACEPTION
     Dosage: UNK
     Dates: start: 20080419, end: 20080701
  2. EFFEXOR [Concomitant]
     Dosage: 75 MG, UNK
     Dates: start: 20100131, end: 20100628
  3. LEVAQUIN [Concomitant]
     Dosage: 500 MG, UNK
     Dates: start: 20100327
  4. CIPROFLOXACIN [Concomitant]
     Dosage: 250 MG, UNK
     Dates: start: 20100328
  5. CLINDAMYCIN [Concomitant]
     Dosage: 300 MG, UNK
     Dates: start: 20100328
  6. HYDROCODONE BITARTRATE AND ACETAMINOPHEN [Concomitant]
     Dosage: 5-500 MG
     Dates: start: 20100328
  7. ALREX [Concomitant]
     Dosage: 0.2 %, UNK
     Route: 047
     Dates: start: 20100506, end: 20100519
  8. MARCAINE [Concomitant]
     Dosage: 0.5 %, UNK
     Dates: start: 20100327
  9. DROSPIRENONE AND ETHINYL ESTRADIOL [Suspect]
     Indication: CONTRACEPTION
     Dosage: UNK
     Dates: start: 20080721, end: 20110101
  10. VICODIN [Concomitant]

REACTIONS (7)
  - VOMITING [None]
  - NAUSEA [None]
  - CHOLECYSTITIS CHRONIC [None]
  - INJURY [None]
  - CHOLELITHIASIS [None]
  - ABDOMINAL PAIN UPPER [None]
  - PAIN [None]
